FAERS Safety Report 5403887-9 (Version None)
Quarter: 2007Q3

REPORT INFORMATION
  Report Type: 
  Country: None (occurrence: None)
  Receive Date: 20070731
  Receipt Date: 20070731
  Transmission Date: 20080115
  Serious: Yes (Hospitalization)
  Sender: FDA-Public Use
  Company Number: None

PATIENT
  Age: 69 Year
  Sex: Male

DRUGS (2)
  1. TRAMADOL HCL [Suspect]
     Indication: PAIN
     Dosage: 50MG TID PO
     Route: 048
     Dates: start: 20050721, end: 20070727
  2. METHOCARBAMOL [Suspect]
     Indication: MUSCLE RELAXANT THERAPY
     Dosage: 500MG TID PO
     Route: 048
     Dates: start: 20070619, end: 20070727

REACTIONS (2)
  - CONSTIPATION [None]
  - ILEUS [None]
